FAERS Safety Report 18920940 (Version 3)
Quarter: 2021Q2

REPORT INFORMATION
  Report Type: Report from Study
  Country: US (occurrence: US)
  Receive Date: 20210222
  Receipt Date: 20210512
  Transmission Date: 20210717
  Serious: Yes (Other)
  Sender: FDA-Public Use
  Company Number: US-BIOVITRUM-2021US1711

PATIENT
  Age: 51 Year
  Sex: Female

DRUGS (2)
  1. KINERET [Suspect]
     Active Substance: ANAKINRA
     Route: 058
     Dates: start: 20200428
  2. KINERET [Suspect]
     Active Substance: ANAKINRA
     Indication: POLYCHONDRITIS
     Route: 058
     Dates: start: 20200422

REACTIONS (8)
  - Ear infection [Unknown]
  - Product dose omission issue [Unknown]
  - Off label use [Not Recovered/Not Resolved]
  - Glaucoma [Unknown]
  - Malaise [Unknown]
  - Tongue pruritus [Unknown]
  - Viral infection [Unknown]
  - Dermatitis allergic [Unknown]

NARRATIVE: CASE EVENT DATE: 20200422
